FAERS Safety Report 7272641-8 (Version None)
Quarter: 2011Q1

REPORT INFORMATION
  Report Type: 
  Country: None (occurrence: None)
  Receive Date: 20110127
  Receipt Date: 20110117
  Transmission Date: 20110831
  Serious: Yes (Death, Hospitalization)
  Sender: FDA-Public Use
  Company Number: GB-ACCORD-005315

PATIENT
  Age: 60 Year
  Sex: Female
  Weight: 49 kg

DRUGS (4)
  1. CARBOPLATIN [Suspect]
     Indication: SQUAMOUS CELL CARCINOMA
  2. PACLITAXEL [Suspect]
     Indication: SQUAMOUS CELL CARCINOMA
     Dosage: 135.00-MG/M2-1.00PER-3.0WEEKS
  3. TRASTUZUMAB(TRASTUZUMAB) [Suspect]
     Indication: SQUAMOUS CELL CARCINOMA
     Dosage: INTRAVENOUS (NOT OTHERWISE SPECIFIED)
     Route: 042
  4. CISPLATIN [Suspect]
     Indication: SQUAMOUS CELL CARCINOMA

REACTIONS (5)
  - OVARIAN CANCER RECURRENT [None]
  - ILEUS [None]
  - TUMOUR NECROSIS [None]
  - METASTASES TO LIVER [None]
  - NEOPLASM MALIGNANT [None]
